FAERS Safety Report 6430939-7 (Version None)
Quarter: 2009Q4

REPORT INFORMATION
  Report Type: 
  Country: None (occurrence: None)
  Receive Date: 20091106
  Receipt Date: 20091102
  Transmission Date: 20100525
  Serious: Yes (Death)
  Sender: FDA-Public Use
  Company Number: US-ASTRAZENECA-2009SE17961

PATIENT
  Age: 17203 Day
  Sex: Male
  Weight: 88.5 kg

DRUGS (4)
  1. SEROQUEL [Suspect]
     Indication: BIPOLAR DISORDER
     Route: 048
     Dates: start: 20090928
  2. METHADONE [Suspect]
     Indication: BACK PAIN
     Route: 048
  3. CLONOPIN [Concomitant]
     Indication: BIPOLAR DISORDER
     Route: 048
  4. CELEXA [Concomitant]
     Indication: DEPRESSION
     Route: 048

REACTIONS (3)
  - ACCIDENTAL OVERDOSE [None]
  - ASPIRATION [None]
  - RESPIRATORY ARREST [None]
